FAERS Safety Report 19204357 (Version 5)
Quarter: 2022Q1

REPORT INFORMATION
  Report Type: Report from Study
  Country: US (occurrence: US)
  Receive Date: 20210503
  Receipt Date: 20220314
  Transmission Date: 20220423
  Serious: No
  Sender: FDA-Public Use
  Company Number: NVSC2021US093256

PATIENT
  Sex: Female
  Weight: 53.061 kg

DRUGS (7)
  1. TREPROSTINIL [Suspect]
     Active Substance: TREPROSTINIL
     Indication: Pulmonary arterial hypertension
     Dosage: UNK, CONT (26 NG/KG/MIN)
     Route: 042
     Dates: start: 20190828
  2. TREPROSTINIL [Suspect]
     Active Substance: TREPROSTINIL
     Dosage: UNK, CONT (26 NG/KG/MIN)
     Route: 042
     Dates: start: 20190828
  3. TREPROSTINIL [Suspect]
     Active Substance: TREPROSTINIL
     Dosage: UNK, CONT (28 NG/KG/MIN)
     Route: 042
     Dates: start: 20190828
  4. CHLORAPREP [Suspect]
     Active Substance: CHLORHEXIDINE GLUCONATE\ISOPROPYL ALCOHOL
     Indication: Product used for unknown indication
     Dosage: UNK
     Route: 065
  5. OXYCODONE [Suspect]
     Active Substance: OXYCODONE
     Indication: Pain
     Dosage: UNK (STARTED COUPLE OF MONTHS AGO)
     Route: 065
  6. AMBRISENTAN [Concomitant]
     Active Substance: AMBRISENTAN
     Indication: Pulmonary arterial hypertension
     Dosage: UNK
     Route: 065
  7. ADCIRCA [Concomitant]
     Active Substance: TADALAFIL
     Indication: Pulmonary arterial hypertension
     Dosage: UNK
     Route: 065

REACTIONS (8)
  - Fibromyalgia [Unknown]
  - Pain of skin [Unknown]
  - Drug hypersensitivity [Unknown]
  - Spinal pain [Unknown]
  - Illness [Unknown]
  - Dyspnoea [Unknown]
  - Erythema [Unknown]
  - Malaise [Unknown]
